FAERS Safety Report 5502457-1 (Version None)
Quarter: 2007Q4

REPORT INFORMATION
  Report Type: 
  Country: None (occurrence: None)
  Receive Date: 20071030
  Receipt Date: 20071018
  Transmission Date: 20080405
  Serious: Yes (Other)
  Sender: FDA-Public Use
  Company Number: GB-PFIZER INC-2007083005

PATIENT
  Age: 67 Year
  Sex: Male

DRUGS (4)
  1. ISTIN [Suspect]
     Indication: HYPERTENSION
     Route: 048
  2. DILTIAZEM [Suspect]
  3. CANDESARTAN CILEXETIL [Concomitant]
     Indication: HYPERTENSION
     Dosage: DAILY DOSE:32MG-FREQ:DAILY
     Route: 048
  4. TAMSULOSIN HCL [Concomitant]
     Dosage: DAILY DOSE:400MG-FREQ:DAILY

REACTIONS (3)
  - MIGRAINE [None]
  - TRANSIENT ISCHAEMIC ATTACK [None]
  - VISUAL DISTURBANCE [None]
